FAERS Safety Report 5252774-8 (Version None)
Quarter: 2007Q1

REPORT INFORMATION
  Report Type: 
  Country: None (occurrence: None)
  Receive Date: 20070301
  Receipt Date: 20061130
  Transmission Date: 20070707
  Serious: No
  Sender: FDA-Public Use
  Company Number: US-GLAXOSMITHKLINE-A0629699A

PATIENT
  Sex: Female

DRUGS (1)
  1. LAMICTAL [Suspect]
     Indication: DRUG USE FOR UNKNOWN INDICATION
     Dosage: 175MG SINGLE DOSE
     Route: 048
     Dates: start: 20061127, end: 20061127

REACTIONS (6)
  - ACCIDENTAL EXPOSURE [None]
  - AMNESIA [None]
  - DIZZINESS [None]
  - DYSARTHRIA [None]
  - SOMNOLENCE [None]
  - VISION BLURRED [None]
